FAERS Safety Report 18235661 (Version 1)
Quarter: 2020Q3

REPORT INFORMATION
  Report Type: Spontaneous
  Country: US (occurrence: US)
  Receive Date: 20200905
  Receipt Date: 20200905
  Transmission Date: 20201103
  Serious: Yes (Other)
  Sender: FDA-Public Use
  Company Number: US-MICRO LABS LIMITED-ML2020-02607

PATIENT
  Age: 7 Year
  Sex: Male

DRUGS (4)
  1. CLONAZEPAM. [Suspect]
     Active Substance: CLONAZEPAM
     Indication: ALTERNATING HEMIPLEGIA OF CHILDHOOD
  2. VERAPAMIL HYDROCHLORIDE. [Suspect]
     Active Substance: VERAPAMIL HYDROCHLORIDE
     Indication: ALTERNATING HEMIPLEGIA OF CHILDHOOD
  3. LEVETIRACETAM. [Suspect]
     Active Substance: LEVETIRACETAM
     Indication: SEIZURE
  4. CLONIDINE. [Concomitant]
     Active Substance: CLONIDINE
     Indication: BEHAVIOURAL THERAPY

REACTIONS (1)
  - Aggression [Unknown]
